FAERS Safety Report 6506203-4 (Version None)
Quarter: 2009Q4

REPORT INFORMATION
  Report Type: 
  Country: None (occurrence: None)
  Receive Date: 20091216
  Receipt Date: 20091203
  Transmission Date: 20100525
  Serious: Yes (Hospitalization, Other)
  Sender: FDA-Public Use
  Company Number: CLOF-1000785

PATIENT
  Age: 72 Year
  Sex: Female

DRUGS (1)
  1. EVOLTRA  (CLOFARABINE) [Suspect]
     Indication: ACUTE MYELOID LEUKAEMIA
     Dates: start: 20091102, end: 20091106

REACTIONS (6)
  - CHILLS [None]
  - DIZZINESS [None]
  - HYPERSENSITIVITY [None]
  - NEUTROPENIC SEPSIS [None]
  - RASH ERYTHEMATOUS [None]
  - SYNCOPE [None]
